FAERS Safety Report 11359319 (Version 1)
Quarter: 2015Q3

REPORT INFORMATION
  Report Type: Spontaneous
  Country: US (occurrence: None)
  Receive Date: 20150807
  Receipt Date: 20150807
  Transmission Date: 20151125
  Serious: No
  Sender: FDA-Public Use
  Company Number: None

PATIENT
  Age: 61 Year
  Sex: Female

DRUGS (7)
  1. LETROZOLE. [Suspect]
     Active Substance: LETROZOLE
     Indication: BREAST CANCER
     Route: 048
     Dates: start: 20150415
  2. CALCIUM [Concomitant]
     Active Substance: CALCIUM
  3. MAGNESIUM [Concomitant]
     Active Substance: MAGNESIUM
  4. VYTORIN [Concomitant]
     Active Substance: EZETIMIBE\SIMVASTATIN
  5. VITAMIN D [Concomitant]
     Active Substance: CHOLECALCIFEROL
  6. ABRAXANE [Concomitant]
     Active Substance: PACLITAXEL
  7. IBRANCE [Suspect]
     Active Substance: PALBOCICLIB
     Indication: BREAST CANCER
     Route: 048
     Dates: start: 20150415, end: 201507

REACTIONS (1)
  - Anaemia [None]

NARRATIVE: CASE EVENT DATE: 201507
